FAERS Safety Report 26074086 (Version 2)
Quarter: 2025Q4

REPORT INFORMATION
  Report Type: Spontaneous
  Country: EU (occurrence: EU)
  Receive Date: 20251121
  Receipt Date: 20251211
  Transmission Date: 20260117
  Serious: Yes (Other)
  Sender: CIPLA
  Company Number: EU-AEMPS-1771047

PATIENT

DRUGS (2)
  1. TADALAFIL [Suspect]
     Active Substance: TADALAFIL
     Indication: Psychogenic erectile dysfunction
     Dosage: 5 MILLIGRAM, QD (1 TABLET A DAY IN THE MORNING), FILM-COATED TABLETS EFG 28 TABLETS
     Route: 048
     Dates: start: 20250701
  2. OMEPRAZOLE [Concomitant]
     Active Substance: OMEPRAZOLE
     Indication: Hiatus hernia
     Dosage: 20 MILLIGRAM, QD (1 CAPSULE A DAY) (EFG, 28 CAPSULES)
     Route: 065

REACTIONS (3)
  - Ear discomfort [Not Recovered/Not Resolved]
  - Tinnitus [Not Recovered/Not Resolved]
  - Hypoacusis [Not Recovered/Not Resolved]

NARRATIVE: CASE EVENT DATE: 20250910
